FAERS Safety Report 5152588-3 (Version None)
Quarter: 2006Q4

REPORT INFORMATION
  Report Type: 
  Country: None (occurrence: None)
  Receive Date: 20061109
  Receipt Date: 19931109
  Transmission Date: 20070319
  Serious: Yes (Death, Hospitalization)
  Sender: FDA-Public Use
  Company Number: 2006121824

PATIENT
  Age: 62 Year
  Sex: Female

DRUGS (7)
  1. IRINOTECAN HCL [Suspect]
     Indication: COLON CANCER
     Dosage: 560 MG (1 IN 3 WK), INTRAVENOUS
     Route: 042
     Dates: start: 19930831, end: 19930831
  2. IRINOTECAN HCL [Suspect]
     Indication: COLON CANCER
     Dosage: 560 MG (1 IN 3 WK), INTRAVENOUS
     Route: 042
     Dates: start: 19931012, end: 19931012
  3. ENALAPRIL MALEATE [Concomitant]
  4. MORPHINE [Concomitant]
  5. OXAZEPAM [Concomitant]
  6. PREDNISOLONE [Concomitant]
  7. RANITIDINE [Concomitant]

REACTIONS (22)
  - ABDOMINAL PAIN [None]
  - ANAEMIA [None]
  - CARDIOGENIC SHOCK [None]
  - CEREBRAL HAEMORRHAGE [None]
  - COLON CANCER [None]
  - CONVULSION [None]
  - DEPRESSED LEVEL OF CONSCIOUSNESS [None]
  - GASTROINTESTINAL HAEMORRHAGE [None]
  - HAEMORRHAGE [None]
  - HYPERSENSITIVITY [None]
  - HYPOTENSION [None]
  - ILL-DEFINED DISORDER [None]
  - IMMUNE SYSTEM DISORDER [None]
  - METASTASES TO CENTRAL NERVOUS SYSTEM [None]
  - NEUROLOGICAL SYMPTOM [None]
  - NEUTROPENIA [None]
  - OEDEMA [None]
  - PERFORMANCE STATUS DECREASED [None]
  - PROCEDURAL COMPLICATION [None]
  - RECURRENT CANCER [None]
  - RENAL FAILURE [None]
  - THROMBOTIC THROMBOCYTOPENIC PURPURA [None]
